FAERS Safety Report 11300616 (Version 1)
Quarter: 2015Q3

REPORT INFORMATION
  Report Type: Spontaneous
  Country: US (occurrence: US)
  Receive Date: 20150722
  Receipt Date: 20150722
  Transmission Date: 20151125
  Serious: No
  Sender: FDA-Public Use
  Company Number: US-ELI_LILLY_AND_COMPANY-US201212004169

PATIENT
  Sex: Female

DRUGS (3)
  1. EFFIENT [Suspect]
     Active Substance: PRASUGREL HYDROCHLORIDE
     Dosage: 10 MG, UNK
  2. INSULIN [Concomitant]
     Active Substance: INSULIN NOS
     Route: 048
  3. INSULIN INJECTION [Concomitant]
     Active Substance: INSULIN NOS
     Route: 058

REACTIONS (1)
  - Blood glucose fluctuation [Unknown]
